FAERS Safety Report 16634688 (Version 2)
Quarter: 2019Q3

REPORT INFORMATION
  Report Type: Report from Study
  Country: DE (occurrence: DE)
  Receive Date: 20190726
  Receipt Date: 20190906
  Transmission Date: 20191004
  Serious: Yes (Hospitalization)
  Sender: FDA-Public Use
  Company Number: DE-ROCHE-2357662

PATIENT
  Age: 53 Year
  Sex: Female

DRUGS (1)
  1. RITUXIMAB. [Suspect]
     Active Substance: RITUXIMAB
     Indication: RHEUMATOID ARTHRITIS
     Route: 065

REACTIONS (2)
  - Rheumatic disorder [Not Recovered/Not Resolved]
  - Joint stiffness [Unknown]

NARRATIVE: CASE EVENT DATE: 20190521
